FAERS Safety Report 8996389 (Version 5)
Quarter: 2013Q2

REPORT INFORMATION
  Report Type: Spontaneous
  Country: US (occurrence: US)
  Receive Date: 20130104
  Receipt Date: 20130628
  Transmission Date: 20140414
  Serious: No
  Sender: FDA-Public Use
  Company Number: US-BIOGENIDEC-2012BI064918

PATIENT
  Age: 49 Year
  Sex: Female

DRUGS (15)
  1. TYSABRI [Suspect]
     Indication: MULTIPLE SCLEROSIS
     Route: 042
     Dates: start: 20121219
  2. IBUPROFEN [Concomitant]
     Indication: MUSCULOSKELETAL PAIN
  3. GABAPENTIN [Concomitant]
     Indication: NEUROPATHY PERIPHERAL
  4. DRUG (NOS) [Concomitant]
     Indication: NARCOLEPSY
  5. BLADDER MEDICATION (NOS) [Concomitant]
     Indication: MICTURITION URGENCY
  6. DEPAKOTE [Concomitant]
     Indication: BIPOLAR DISORDER
  7. HYDROCODONE [Concomitant]
     Indication: MUSCULOSKELETAL PAIN
  8. BLADDER MEDICATIONS (NOS) [Concomitant]
     Indication: MICTURITION URGENCY
  9. OXYBUTYNIN CHLORIDE [Concomitant]
     Indication: URINARY INCONTINENCE
  10. MYRBETRIQ [Concomitant]
     Indication: URINARY INCONTINENCE
  11. NEURONTIN [Concomitant]
     Indication: NEUROPATHY PERIPHERAL
  12. PROZAC [Concomitant]
     Indication: DEPRESSION
  13. PAXIL [Concomitant]
     Indication: DEPRESSION
  14. CYMBALTA [Concomitant]
     Indication: DEPRESSION
  15. DEPAKOTE [Concomitant]
     Indication: DEPRESSION

REACTIONS (17)
  - Urinary incontinence [Recovered/Resolved]
  - Hypoaesthesia [Recovered/Resolved]
  - Gait disturbance [Not Recovered/Not Resolved]
  - Pain [Not Recovered/Not Resolved]
  - Narcolepsy [Not Recovered/Not Resolved]
  - Faecal incontinence [Recovered/Resolved]
  - Somnolence [Not Recovered/Not Resolved]
  - Dysstasia [Not Recovered/Not Resolved]
  - Pain in extremity [Not Recovered/Not Resolved]
  - Screaming [Unknown]
  - Exercise lack of [Unknown]
  - Multiple allergies [Not Recovered/Not Resolved]
  - Bladder spasm [Unknown]
  - Sinusitis [Unknown]
  - Malaise [Recovered/Resolved with Sequelae]
  - Fatigue [Recovered/Resolved]
  - Asthenia [Recovered/Resolved]
